FAERS Safety Report 6477712-1 (Version None)
Quarter: 2009Q4

REPORT INFORMATION
  Report Type: 
  Country: None (occurrence: None)
  Receive Date: 20091207
  Receipt Date: 20091203
  Transmission Date: 20100525
  Serious: Yes (Other)
  Sender: FDA-Public Use
  Company Number: BR-PFIZER INC-2009294237

PATIENT
  Age: 38 Year
  Sex: Female
  Weight: 50.794 kg

DRUGS (4)
  1. LYRICA [Suspect]
     Indication: FIBROMYALGIA
     Dosage: 75 MG, UNK
     Route: 048
     Dates: start: 20091001
  2. PARACETAMOL [Concomitant]
     Dosage: UNK
  3. CYCLOBENZAPRINE HYDROCHLORIDE [Concomitant]
     Dosage: UNK
  4. NIMESULIDE [Concomitant]
     Dosage: UNK

REACTIONS (5)
  - ASPHYXIA [None]
  - DIZZINESS [None]
  - DYSPNOEA [None]
  - FEELING ABNORMAL [None]
  - SENSORY DISTURBANCE [None]
